FAERS Safety Report 24946874 (Version 1)
Quarter: 2025Q1

REPORT INFORMATION
  Report Type: Spontaneous
  Country: CA (occurrence: CA)
  Receive Date: 20250210
  Receipt Date: 20250210
  Transmission Date: 20250408
  Serious: Yes (Death, Life-Threatening, Other)
  Sender: SANDOZ
  Company Number: CA-002147023-NVSC2023CA135392

PATIENT
  Age: 60 Year
  Sex: Male

DRUGS (8)
  1. HEPARIN SODIUM [Suspect]
     Active Substance: HEPARIN SODIUM
     Indication: Venous thrombosis
     Route: 042
  2. HEPARIN SODIUM [Suspect]
     Active Substance: HEPARIN SODIUM
     Indication: Jugular vein thrombosis
  3. ALFACALCIDOL [Concomitant]
     Active Substance: ALFACALCIDOL
     Indication: Product used for unknown indication
     Route: 065
  4. CALCITONIN [Concomitant]
     Active Substance: CALCITONIN
     Indication: Hypercalcaemia
     Route: 065
  5. CALCIUM [Concomitant]
     Active Substance: CALCIUM
     Indication: Mineral supplementation
     Route: 065
  6. CINACALCET [Concomitant]
     Active Substance: CINACALCET
     Indication: Hypercalcaemia
     Route: 065
  7. DENOSUMAB [Concomitant]
     Active Substance: DENOSUMAB
     Indication: Hypercalcaemia
     Route: 058
  8. PAMIDRONIC ACID [Concomitant]
     Active Substance: PAMIDRONIC ACID
     Indication: Hypercalcaemia
     Route: 065

REACTIONS (1)
  - Death [Fatal]
